FAERS Safety Report 5750279-9 (Version None)
Quarter: 2008Q2

REPORT INFORMATION
  Report Type: 
  Country: None (occurrence: None)
  Receive Date: 20080522
  Receipt Date: 20080522
  Transmission Date: 20081010
  Serious: Yes (Hospitalization)
  Sender: FDA-Public Use
  Company Number: None

PATIENT
  Sex: Female

DRUGS (1)
  1. TARCEVA [Suspect]
     Dosage: 125MG QD PO
     Route: 048
     Dates: start: 20080402

REACTIONS (3)
  - ANOREXIA [None]
  - DEHYDRATION [None]
  - DIARRHOEA [None]
